FAERS Safety Report 6626585-2 (Version None)
Quarter: 2010Q1

REPORT INFORMATION
  Report Type: 
  Country: None (occurrence: None)
  Receive Date: 20100309
  Receipt Date: 20100309
  Transmission Date: 20100710
  Serious: Yes (Other)
  Sender: FDA-Public Use
  Company Number: None

PATIENT
  Age: 5 Year
  Sex: Male
  Weight: 18.1439 kg

DRUGS (4)
  1. INTUNIV [Suspect]
     Indication: AGGRESSION
     Dosage: 1MG 1/DAY PO
     Route: 048
     Dates: start: 20100228, end: 20100303
  2. INTUNIV [Suspect]
     Indication: NEGATIVISM
     Dosage: 1MG 1/DAY PO
     Route: 048
     Dates: start: 20100228, end: 20100303
  3. INTUNIV [Suspect]
     Indication: PSYCHOMOTOR HYPERACTIVITY
     Dosage: 1MG 1/DAY PO
     Route: 048
     Dates: start: 20100228, end: 20100303
  4. VITABASE VITACOMPLETE [Suspect]
     Dosage: .5 OZ 1/DAY PO
     Route: 048
     Dates: start: 20091115, end: 20100305

REACTIONS (1)
  - HALLUCINATION, VISUAL [None]
